FAERS Safety Report 4715865-3 (Version None)
Quarter: 2005Q3

REPORT INFORMATION
  Report Type: 
  Country: None (occurrence: None)
  Receive Date: 20050713
  Receipt Date: 20050629
  Transmission Date: 20060218
  Serious: Yes (Other)
  Sender: FDA-Public Use
  Company Number: SUS1-2005-00523

PATIENT
  Sex: Male

DRUGS (1)
  1. ADDERALL XR (DEXTROAMPHETAMINE SULFATE, DEXTROAMPETHAMINE SACCHARATE, [Suspect]

REACTIONS (2)
  - HOMICIDAL IDEATION [None]
  - SUICIDAL IDEATION [None]
